FAERS Safety Report 14764500 (Version 2)
Quarter: 2018Q2

REPORT INFORMATION
  Report Type: Report from Study
  Country: IT (occurrence: IT)
  Receive Date: 20180416
  Receipt Date: 20180423
  Transmission Date: 20180711
  Serious: Yes (Death, Other)
  Sender: FDA-Public Use
  Company Number: IT-PFIZER INC-2018151002

PATIENT

DRUGS (3)
  1. CYTARABINE. [Suspect]
     Active Substance: CYTARABINE
     Dosage: 500 MG/M2, CYCLIC (OVER 1 H, Q 12 H, FROM DAY 1 TO DAY 3)
     Route: 042
  2. CARBOPLATIN. [Suspect]
     Active Substance: CARBOPLATIN
     Dosage: 150 MG/M2, CYCLIC (PER DAY CONTINUOUS INFUSION FROM DAY 1 TO DAY 3)
     Route: 042
  3. ETOPOSIDE. [Suspect]
     Active Substance: ETOPOSIDE
     Dosage: 100 MG/M2, CYCLIC (PER DAY OVER 1 H FROM DAY 1 TO DAY 3)
     Route: 042

REACTIONS (3)
  - Granulocytopenia [Unknown]
  - Cardiac failure [Fatal]
  - Thrombocytopenia [Unknown]
